FAERS Safety Report 5223196-0 (Version None)
Quarter: 2007Q1

REPORT INFORMATION
  Report Type: 
  Country: None (occurrence: None)
  Receive Date: 20070124
  Receipt Date: 20070115
  Transmission Date: 20070707
  Serious: Yes (Disabling, Other)
  Sender: FDA-Public Use
  Company Number: GXKR2007GB00824

PATIENT
  Age: 60 Year
  Sex: Male
  Weight: 127 kg

DRUGS (4)
  1. LISINOPRIL [Suspect]
     Indication: HYPERTENSION
     Dosage: 2.5 MG, ORAL
     Route: 048
     Dates: start: 20060901, end: 20060904
  2. WARFARIN SODIUM [Suspect]
     Indication: DRUG USE FOR UNKNOWN INDICATION
     Dosage: 5.5 MG, QD, ORAL
     Route: 048
     Dates: start: 19940101
  3. LANSOPRAZOLE [Concomitant]
  4. STATINE [Concomitant]

REACTIONS (3)
  - ABDOMINAL PAIN [None]
  - HEART RATE DECREASED [None]
  - RETINAL HAEMORRHAGE [None]
